FAERS Safety Report 17884675 (Version 1)
Quarter: 2020Q2

REPORT INFORMATION
  Report Type: Spontaneous
  Country: US (occurrence: US)
  Receive Date: 20200611
  Receipt Date: 20200611
  Transmission Date: 20200714
  Serious: No
  Sender: FDA-Public Use
  Company Number: None

PATIENT
  Sex: Female

DRUGS (1)
  1. KISQALI [Suspect]
     Active Substance: RIBOCICLIB
     Indication: BREAST CANCER FEMALE
     Route: 048
     Dates: start: 20200515

REACTIONS (6)
  - Heart rate increased [None]
  - Weight decreased [None]
  - Dyspnoea [None]
  - Pelvic pain [None]
  - Pain [None]
  - Decreased appetite [None]
